FAERS Safety Report 9469394 (Version 1)
Quarter: 2013Q3

REPORT INFORMATION
  Report Type: Report from Study
  Country: CA (occurrence: CA)
  Receive Date: 20130821
  Receipt Date: 20130821
  Transmission Date: 20140515
  Serious: Yes (Other)
  Sender: FDA-Public Use
  Company Number: CA-ROCHE-1262452

PATIENT
  Age: 62 Year
  Sex: Female
  Weight: 129.3 kg

DRUGS (13)
  1. RITUXAN [Suspect]
     Indication: RHEUMATOID ARTHRITIS
     Dosage: FREQUENCY:  DAY 1 AND DAY 15
     Route: 042
     Dates: start: 20120126, end: 20130321
  2. PREDNISONE [Suspect]
     Indication: PRODUCT USED FOR UNKNOWN INDICATION
     Route: 065
     Dates: start: 2001
  3. PREDNISONE [Suspect]
     Route: 065
     Dates: start: 201308
  4. DIPHENHYDRAMINE HCL [Concomitant]
     Indication: PREMEDICATION
     Route: 048
     Dates: start: 20120126, end: 20130321
  5. ACETAMINOPHEN [Concomitant]
     Indication: PREMEDICATION
     Route: 048
     Dates: start: 20120126, end: 20130321
  6. METHYLPREDNISOLONE [Concomitant]
     Indication: PREMEDICATION
     Route: 042
     Dates: start: 20120126, end: 20130321
  7. PLAQUENIL [Concomitant]
     Route: 065
  8. ACTONEL [Concomitant]
  9. COUMADIN [Concomitant]
  10. TOLOXIN (CANADA) [Concomitant]
  11. BISOPROLOL [Concomitant]
  12. ASA (ACETYLSALICYLIC ACID) [Concomitant]
     Route: 065
  13. NEXIUM [Concomitant]

REACTIONS (4)
  - Swelling [Not Recovered/Not Resolved]
  - Acne [Not Recovered/Not Resolved]
  - Drug ineffective [Unknown]
  - Pain in extremity [Not Recovered/Not Resolved]
